FAERS Safety Report 11752513 (Version 2)
Quarter: 2015Q4

REPORT INFORMATION
  Report Type: Spontaneous
  Country: FR (occurrence: FR)
  Receive Date: 20151119
  Receipt Date: 20151228
  Transmission Date: 20160304
  Serious: Yes (Life-Threatening, Hospitalization, Other)
  Sender: FDA-Public Use
  Company Number: FR-PFIZER INC-2015385513

PATIENT
  Age: 60 Year
  Sex: Male
  Weight: 83 kg

DRUGS (9)
  1. ZELITREX [Concomitant]
     Active Substance: VALACYCLOVIR HYDROCHLORIDE
     Dosage: UNK
  2. LOXEN /00639802/ [Concomitant]
     Active Substance: NICARDIPINE
  3. TAHOR [Suspect]
     Active Substance: ATORVASTATIN CALCIUM
     Dosage: 40 MG, 1X/DAY
     Route: 048
     Dates: end: 20151026
  4. WELLVONE [Concomitant]
     Active Substance: ATOVAQUONE
     Dosage: UNK
  5. NEORAL [Interacting]
     Active Substance: CYCLOSPORINE
     Indication: PROPHYLAXIS
     Dosage: UNK
     Route: 048
     Dates: start: 20150928, end: 20151027
  6. FORTUM /00559701/ [Concomitant]
     Active Substance: CEFTAZIDIME
     Dosage: UNK
     Dates: start: 20151029
  7. NOXAFIL [Interacting]
     Active Substance: POSACONAZOLE
     Indication: PROPHYLAXIS
     Dosage: UNK
     Route: 048
     Dates: start: 201510, end: 20151028
  8. VANCOMYCINE [Concomitant]
     Active Substance: VANCOMYCIN
     Dosage: UNK
     Dates: start: 20151025
  9. MERONEM [Concomitant]
     Active Substance: MEROPENEM
     Dosage: UNK
     Dates: end: 20151029

REACTIONS (7)
  - Hyperkalaemia [Recovered/Resolved]
  - Acute kidney injury [Recovered/Resolved with Sequelae]
  - Transaminases increased [Unknown]
  - Rhabdomyolysis [Recovered/Resolved with Sequelae]
  - Acute respiratory distress syndrome [Unknown]
  - Blood creatine phosphokinase increased [Recovered/Resolved]
  - Drug interaction [Recovering/Resolving]

NARRATIVE: CASE EVENT DATE: 201510
